FAERS Safety Report 15060495 (Version 1)
Quarter: 2018Q2

REPORT INFORMATION
  Report Type: Spontaneous
  Country: US (occurrence: US)
  Receive Date: 20180605
  Receipt Date: 20180605
  Transmission Date: 20180711
  Serious: No
  Sender: FDA-Public Use
  Company Number: None

PATIENT
  Age: 65 Year
  Sex: Female

DRUGS (1)
  1. TEMOZOLOMIDE 100MG CAP [Suspect]
     Active Substance: TEMOZOLOMIDE
     Dates: start: 20180529, end: 20180605

REACTIONS (2)
  - Skin hyperpigmentation [None]
  - Pain in extremity [None]

NARRATIVE: CASE EVENT DATE: 20180529
